FAERS Safety Report 18998851 (Version 1)
Quarter: 2021Q1

REPORT INFORMATION
  Report Type: Spontaneous
  Country: US (occurrence: US)
  Receive Date: 20210311
  Receipt Date: 20210311
  Transmission Date: 20210420
  Serious: No
  Sender: FDA-Public Use
  Company Number: US-JNJFOC-20210105609

PATIENT
  Age: 71 Year
  Sex: Female
  Weight: 54.48 kg

DRUGS (1)
  1. TRACLEER [Suspect]
     Active Substance: BOSENTAN
     Indication: PRODUCT USED FOR UNKNOWN INDICATION
     Dosage: APPROXIMATELY 15 YEARS PRIOR TO THE TIME OF REPORT
     Route: 048

REACTIONS (1)
  - Nausea [Unknown]
